FAERS Safety Report 8002111-0 (Version None)
Quarter: 2011Q4

REPORT INFORMATION
  Report Type: 
  Country: None (occurrence: None)
  Receive Date: 20111222
  Receipt Date: 20111219
  Transmission Date: 20120403
  Serious: Yes (Life-Threatening)
  Sender: FDA-Public Use
  Company Number: JP-PFIZER INC-2011307247

PATIENT
  Age: 80 Year
  Sex: Female
  Weight: 42 kg

DRUGS (8)
  1. ZYVOX [Suspect]
     Indication: STAPHYLOCOCCAL SEPSIS
     Dosage: 600 MG, 2X/DAY
     Route: 048
     Dates: start: 20111018, end: 20111031
  2. CALCIUM CARBONATE [Concomitant]
  3. MIYA BM [Concomitant]
  4. ALFAROL [Concomitant]
  5. TEICOPLANIN [Interacting]
     Indication: STAPHYLOCOCCAL SEPSIS
     Dosage: 400 MG, SINGLE
     Route: 042
     Dates: start: 20110916, end: 20111102
  6. OMEPRAZOLE [Concomitant]
  7. MUCOSTA [Concomitant]
  8. WARFARIN [Concomitant]

REACTIONS (2)
  - DRUG INTERACTION [None]
  - PANCYTOPENIA [None]
